FAERS Safety Report 17809682 (Version 2)
Quarter: 2020Q2

REPORT INFORMATION
  Report Type: Spontaneous
  Country: ES (occurrence: ES)
  Receive Date: 20200520
  Receipt Date: 20200527
  Transmission Date: 20200714
  Serious: Yes (Other)
  Sender: FDA-Public Use
  Company Number: ES-BAUSCH-BL-2020-014567

PATIENT
  Sex: Male

DRUGS (2)
  1. TOBRAMYCIN. [Concomitant]
     Active Substance: TOBRAMYCIN
     Indication: CONJUNCTIVITIS
  2. DEXAMETHASONE. [Suspect]
     Active Substance: DEXAMETHASONE
     Indication: CONJUNCTIVITIS
     Route: 065

REACTIONS (1)
  - Keratitis bacterial [Recovered/Resolved]
